FAERS Safety Report 10785508 (Version 2)
Quarter: 2015Q2

REPORT INFORMATION
  Report Type: Spontaneous
  Country: FR (occurrence: FR)
  Receive Date: 20150211
  Receipt Date: 20150520
  Transmission Date: 20150821
  Serious: Yes (Life-Threatening)
  Sender: FDA-Public Use
  Company Number: FR-ASTRAZENECA-2015SE11115

PATIENT
  Age: 23321 Day
  Sex: Female

DRUGS (11)
  1. SUFENTA [Suspect]
     Active Substance: SUFENTANIL CITRATE
     Indication: INDUCTION OF ANAESTHESIA
     Route: 042
     Dates: start: 20150115, end: 20150115
  2. SIMVASTATINE [Concomitant]
     Active Substance: SIMVASTATIN
  3. SERETIDE [Concomitant]
     Active Substance: FLUTICASONE FUROATE\SALMETEROL XINAFOATE
  4. TENORDATE [Concomitant]
     Active Substance: ATENOLOL\NIFEDIPINE
  5. ALPRAZOLAM. [Concomitant]
     Active Substance: ALPRAZOLAM
  6. ENALAPRIL [Concomitant]
     Active Substance: ENALAPRIL
  7. DIPRIVAN [Suspect]
     Active Substance: PROPOFOL
     Indication: INDUCTION OF ANAESTHESIA
     Route: 042
     Dates: start: 20150115, end: 20150115
  8. XYLOCAINE VISCOUS [Suspect]
     Active Substance: LIDOCAINE HYDROCHLORIDE
     Dosage: 2 PERCENT, ONCE/SINGLE ADMINISTRATION
     Route: 002
     Dates: start: 20150115, end: 20150115
  9. TRACRIUM [Suspect]
     Active Substance: ATRACURIUM BESYLATE
     Indication: INDUCTION OF ANAESTHESIA
     Route: 042
     Dates: start: 20150115, end: 20150115
  10. LEVOTHYROX [Concomitant]
     Active Substance: LEVOTHYROXINE
  11. RILMENIDINE [Concomitant]
     Active Substance: RILMENIDINE

REACTIONS (1)
  - Anaphylactic shock [Recovered/Resolved]

NARRATIVE: CASE EVENT DATE: 20150115
